FAERS Safety Report 8213704-X (Version None)
Quarter: 2012Q1

REPORT INFORMATION
  Report Type: 
  Country: None (occurrence: None)
  Receive Date: 20120315
  Receipt Date: 20120307
  Transmission Date: 20120608
  Serious: Yes (Other)
  Sender: FDA-Public Use
  Company Number: US-ASTRAZENECA-2012SE16122

PATIENT
  Age: 19 Year
  Sex: Female

DRUGS (1)
  1. SEROQUEL [Suspect]
     Route: 048

REACTIONS (4)
  - DEPRESSION [None]
  - WEIGHT INCREASED [None]
  - SUICIDAL IDEATION [None]
  - DRUG DOSE OMISSION [None]
